FAERS Safety Report 9624903 (Version 2)
Quarter: 2013Q4

REPORT INFORMATION
  Report Type: Report from Study
  Country: US (occurrence: US)
  Receive Date: 20131016
  Receipt Date: 20131109
  Transmission Date: 20140711
  Serious: Yes (Death)
  Sender: FDA-Public Use
  Company Number: US-ROCHE-1289396

PATIENT
  Age: 83 Year
  Sex: Female

DRUGS (4)
  1. AVASTIN [Suspect]
     Indication: ENDOMETRIAL CANCER
     Dosage: CYCLE 1 DAY 1
     Route: 065
     Dates: start: 20121101
  2. AVASTIN [Suspect]
     Indication: UTERINE CANCER
     Dosage: CYCLE 2 DAY 1
     Route: 065
     Dates: start: 20121121
  3. KYTRIL [Suspect]
     Indication: ENDOMETRIAL CANCER
     Route: 042
     Dates: start: 20121101
  4. KYTRIL [Suspect]
     Indication: UTERINE CANCER

REACTIONS (2)
  - Uterine cancer [Fatal]
  - Carbohydrate antigen 125 increased [Unknown]
